FAERS Safety Report 8808756 (Version 1)
Quarter: 2012Q4

REPORT INFORMATION
  Report Type: 
  Country: US (occurrence: None)
  Receive Date: 20120921
  Receipt Date: 20120921
  Transmission Date: 20130627
  Serious: Yes (Other)
  Sender: FDA-Public Use
  Company Number: None

PATIENT
  Age: 8 Year

DRUGS (2)
  1. FOCALIN XR [Suspect]
     Indication: ADHD
     Dosage: 10 mg 9am, 1 month
  2. FERROUS SULFATE [Concomitant]

REACTIONS (1)
  - Hallucination, visual [None]
